FAERS Safety Report 4898402-2 (Version None)
Quarter: 2006Q1

REPORT INFORMATION
  Report Type: 
  Country: None (occurrence: None)
  Receive Date: 20060201
  Receipt Date: 20060201
  Transmission Date: 20060701
  Serious: Yes (Other)
  Sender: FDA-Public Use
  Company Number: None

PATIENT
  Age: 62 Year
  Sex: Female
  Weight: 55.7924 kg

DRUGS (1)
  1. CARBIDOPA/LEVODOPA ER 50/200 APOTEX [Suspect]
     Indication: PARKINSON'S DISEASE
     Dosage: 1/2 FOUR TIMES DAILY [YEARS]

REACTIONS (3)
  - EXERCISE TOLERANCE DECREASED [None]
  - MOVEMENT DISORDER [None]
  - TREMOR [None]
